FAERS Safety Report 5703803-6 (Version None)
Quarter: 2008Q2

REPORT INFORMATION
  Report Type: 
  Country: None (occurrence: None)
  Receive Date: 20080414
  Receipt Date: 20080404
  Transmission Date: 20081010
  Serious: Yes (Other)
  Sender: FDA-Public Use
  Company Number: US-BAYER-200714824NA

PATIENT
  Age: 44 Year
  Sex: Female
  Weight: 66 kg

DRUGS (2)
  1. BETASERON [Suspect]
     Indication: RELAPSING-REMITTING MULTIPLE SCLEROSIS
     Dosage: TOTAL DAILY DOSE: 8 MIU
     Route: 058
     Dates: start: 20070322
  2. BETASERON [Suspect]
     Dosage: AS USED: 4 MIU
     Route: 058

REACTIONS (5)
  - FATIGUE [None]
  - HEART RATE INCREASED [None]
  - INFLUENZA [None]
  - PALPITATIONS [None]
  - TACHYARRHYTHMIA [None]
